FAERS Safety Report 19099732 (Version 1)
Quarter: 2021Q2

REPORT INFORMATION
  Report Type: Spontaneous
  Country: RU (occurrence: RU)
  Receive Date: 20210407
  Receipt Date: 20210407
  Transmission Date: 20210717
  Serious: Yes (Hospitalization)
  Sender: FDA-Public Use
  Company Number: RU-LUPIN PHARMACEUTICALS INC.-2021-04202

PATIENT
  Age: 27 Year
  Sex: Female

DRUGS (10)
  1. AMOXICILLIN + CLAVULANIC ACID [Suspect]
     Active Substance: AMOXICILLIN\CLAVULANIC ACID
     Indication: BACTEROIDES INFECTION
  2. CEFAZOLINE [Suspect]
     Active Substance: CEFAZOLIN SODIUM
     Indication: ANTIBIOTIC PROPHYLAXIS
     Dosage: 1 GRAM (1 GRAM (ADMINISTERED 30MIN BEFORE UNDERGOING A C?SECTION)
     Route: 042
  3. METRONIDAZOLE. [Suspect]
     Active Substance: METRONIDAZOLE
     Indication: EUBACTERIUM INFECTION
     Dosage: UNK
     Route: 065
  4. AMOXICILLIN + CLAVULANIC ACID [Suspect]
     Active Substance: AMOXICILLIN\CLAVULANIC ACID
     Indication: EUBACTERIUM INFECTION
     Dosage: 1.2 GRAM, TID 3 TIMES A DAY
     Route: 042
  5. IMIPENEM AND CILASTATIN [Suspect]
     Active Substance: CILASTATIN SODIUM\IMIPENEM
     Indication: BACTEROIDES INFECTION
  6. METRONIDAZOLE. [Suspect]
     Active Substance: METRONIDAZOLE
     Indication: BACTEROIDES INFECTION
  7. GENTAMYCIN [GENTAMICIN] [Concomitant]
     Active Substance: GENTAMICIN
     Indication: BACTEROIDES INFECTION
  8. CEFAZOLINE [Suspect]
     Active Substance: CEFAZOLIN SODIUM
     Dosage: 1 GRAM, TID (1G THREE TIMES A DAY WAS CONTINUED FOR 72HRS)
     Route: 042
  9. IMIPENEM AND CILASTATIN [Suspect]
     Active Substance: CILASTATIN SODIUM\IMIPENEM
     Indication: EUBACTERIUM INFECTION
     Dosage: UNK
     Route: 065
  10. GENTAMYCIN [GENTAMICIN] [Concomitant]
     Active Substance: GENTAMICIN
     Indication: EUBACTERIUM INFECTION
     Dosage: 160 MILLIGRAM, QD
     Route: 065

REACTIONS (2)
  - Maternal exposure during pregnancy [Unknown]
  - Drug ineffective [Unknown]
